FAERS Safety Report 16159102 (Version 1)
Quarter: 2019Q2

REPORT INFORMATION
  Report Type: Spontaneous
  Country: US (occurrence: US)
  Receive Date: 20190404
  Receipt Date: 20190404
  Transmission Date: 20190711
  Serious: No
  Sender: FDA-Public Use
  Company Number: US-ASTRAZENECA-2019SE39112

PATIENT
  Age: 25797 Day
  Sex: Female

DRUGS (2)
  1. PROAIR HFA [Concomitant]
     Active Substance: ALBUTEROL SULFATE
     Indication: ASTHMA
     Dosage: 108.0UG EVERY 4 - 6 HOURS
     Route: 055
     Dates: start: 20130215
  2. SYMBICORT [Suspect]
     Active Substance: BUDESONIDE\FORMOTEROL FUMARATE DIHYDRATE
     Indication: ASTHMA
     Dosage: 160/4.5MCG 2 PUFFS TWICE A DAY
     Route: 055
     Dates: start: 20100122

REACTIONS (5)
  - Circumstance or information capable of leading to medication error [Unknown]
  - Product dispensing error [Unknown]
  - Product packaging issue [Unknown]
  - Mass [Unknown]
  - Transplant [Unknown]

NARRATIVE: CASE EVENT DATE: 20190228
